FAERS Safety Report 13129281 (Version 1)
Quarter: 2017Q1

REPORT INFORMATION
  Report Type: Spontaneous
  Country: US (occurrence: US)
  Receive Date: 20170118
  Receipt Date: 20170118
  Transmission Date: 20170428
  Serious: No
  Sender: FDA-Public Use
  Company Number: None

PATIENT
  Age: 46 Year
  Sex: Male
  Weight: 109.9 kg

DRUGS (1)
  1. PACLITAXEL 6MG/ML 50 ML MULTIDOSE VIAL PHARMACHEMIE B.V. FOR TEVA [Suspect]
     Active Substance: PACLITAXEL
     Indication: GLIOMA
     Route: 042
     Dates: start: 20161129, end: 20161227

REACTIONS (2)
  - Flushing [None]
  - Feeling hot [None]

NARRATIVE: CASE EVENT DATE: 20161227
